FAERS Safety Report 14892578 (Version 1)
Quarter: 2018Q2

REPORT INFORMATION
  Report Type: Spontaneous
  Country: US (occurrence: US)
  Receive Date: 20180514
  Receipt Date: 20180514
  Transmission Date: 20180711
  Serious: No
  Sender: FDA-Public Use
  Company Number: US-GLAXOSMITHKLINE-US2018GSK085261

PATIENT
  Sex: Female

DRUGS (1)
  1. NUCALA [Suspect]
     Active Substance: MEPOLIZUMAB
     Indication: PRODUCT USED FOR UNKNOWN INDICATION
     Dosage: 100 MG, UNK
     Route: 058
     Dates: start: 20180124, end: 20180221

REACTIONS (5)
  - Dizziness [Unknown]
  - Fatigue [Unknown]
  - Headache [Unknown]
  - Nausea [Unknown]
  - Hypoaesthesia oral [Unknown]
